FAERS Safety Report 6676183-X (Version None)
Quarter: 2010Q2

REPORT INFORMATION
  Report Type: 
  Country: None (occurrence: None)
  Receive Date: 20100412
  Receipt Date: 20100405
  Transmission Date: 20101027
  Serious: Yes (Other)
  Sender: FDA-Public Use
  Company Number: US-SP-2010-01111

PATIENT
  Sex: Male

DRUGS (5)
  1. THERACYS [Suspect]
     Indication: BLADDER CANCER
     Dosage: DOSE # 10-12   2/3 - 1/2 STRENGTH
     Route: 043
     Dates: start: 20091104, end: 20091118
  2. THERACYS [Suspect]
     Dosage: DOSE # 8-9
     Route: 065
     Dates: start: 20090807, end: 20090814
  3. THERACYS [Suspect]
     Dosage: DOSE # 6-7
     Route: 065
     Dates: start: 20090429, end: 20090731
  4. THERACYS [Suspect]
     Dosage: DOSE # 5
     Route: 065
     Dates: start: 20090417, end: 20090417
  5. THERACYS [Suspect]
     Dosage: DOSE # 1-4
     Route: 065
     Dates: start: 20090324, end: 20090413

REACTIONS (7)
  - DYSURIA [None]
  - HAEMATURIA [None]
  - INCORRECT DRUG DOSAGE FORM ADMINISTERED [None]
  - POLLAKIURIA [None]
  - PYREXIA [None]
  - SUPRAPUBIC PAIN [None]
  - URETHRITIS [None]
